FAERS Safety Report 17300181 (Version 1)
Quarter: 2020Q1

REPORT INFORMATION
  Report Type: Spontaneous
  Country: US (occurrence: US)
  Receive Date: 20200122
  Receipt Date: 20200122
  Transmission Date: 20200409
  Serious: No
  Sender: FDA-Public Use
  Company Number: US-ALLERGAN-1915025US

PATIENT
  Age: 66 Year
  Sex: Female
  Weight: 113.38 kg

DRUGS (1)
  1. RESTASIS [Suspect]
     Active Substance: CYCLOSPORINE
     Indication: DRY EYE
     Dosage: 2 GTT, BID
     Route: 047
     Dates: start: 201905

REACTIONS (3)
  - Arthropathy [Unknown]
  - Accidental exposure to product [Unknown]
  - Product dropper issue [Unknown]
